FAERS Safety Report 5169862-7 (Version None)
Quarter: 2006Q4

REPORT INFORMATION
  Report Type: 
  Country: None (occurrence: None)
  Receive Date: 20061212
  Receipt Date: 20060921
  Transmission Date: 20070319
  Serious: No
  Sender: FDA-Public Use
  Company Number: US-AMGEN-KDL194555

PATIENT
  Sex: Female
  Weight: 73.5 kg

DRUGS (7)
  1. SENSIPAR [Suspect]
     Indication: HYPERPARATHYROIDISM SECONDARY
     Route: 048
     Dates: start: 20060329
  2. EPOGEN [Concomitant]
     Route: 065
     Dates: start: 20060401
  3. ZEMPLAR [Concomitant]
     Route: 065
     Dates: start: 20060401
  4. VENOFER [Concomitant]
     Route: 065
     Dates: start: 20060401
  5. FOSRENOL [Concomitant]
     Route: 065
     Dates: start: 20060831
  6. RENAGEL [Concomitant]
     Route: 065
     Dates: start: 20060731
  7. VITAMINS [Concomitant]
     Route: 065
     Dates: start: 20060401

REACTIONS (1)
  - DYSPNOEA [None]
